FAERS Safety Report 6609381-1 (Version None)
Quarter: 2010Q1

REPORT INFORMATION
  Report Type: 
  Country: None (occurrence: None)
  Receive Date: 20100302
  Receipt Date: 20100225
  Transmission Date: 20100710
  Serious: Yes (Hospitalization, Other)
  Sender: FDA-Public Use
  Company Number: GB-TEVA-223720ISR

PATIENT

DRUGS (2)
  1. CARBAMAZEPINE [Suspect]
     Dates: start: 20010701, end: 20080520
  2. CLOZAPINE [Suspect]
     Indication: SCHIZOAFFECTIVE DISORDER
     Dates: start: 20080201, end: 20080515

REACTIONS (4)
  - AGGRESSION [None]
  - DELUSION [None]
  - NEUTROPENIA [None]
  - WHITE BLOOD CELL COUNT DECREASED [None]
